FAERS Safety Report 7444243-1 (Version None)
Quarter: 2011Q2

REPORT INFORMATION
  Report Type: 
  Country: None (occurrence: None)
  Receive Date: 20110429
  Receipt Date: 20110405
  Transmission Date: 20111010
  Serious: Yes (Hospitalization)
  Sender: FDA-Public Use
  Company Number: US-BAYER-201035811NA

PATIENT
  Age: 44 Year
  Sex: Female
  Weight: 68.027 kg

DRUGS (1)
  1. YAZ [Suspect]
     Dosage: UNK
     Dates: start: 20060201, end: 20060501

REACTIONS (3)
  - PULMONARY EMBOLISM [None]
  - PAIN [None]
  - DYSPNOEA [None]
